FAERS Safety Report 16680056 (Version 1)
Quarter: 2019Q3

REPORT INFORMATION
  Report Type: Report from Study
  Country: CO (occurrence: CO)
  Receive Date: 20190807
  Receipt Date: 20190807
  Transmission Date: 20191004
  Serious: Yes (Hospitalization, Other)
  Sender: FDA-Public Use
  Company Number: CO-SA-2019SA211801

PATIENT
  Age: 50 Year
  Sex: Female

DRUGS (4)
  1. ALPRAZOLAM. [Concomitant]
     Active Substance: ALPRAZOLAM
     Indication: SLEEP DISORDER
     Dosage: 10 MG, HS
     Route: 048
  2. ALPRAZOLAM. [Concomitant]
     Active Substance: ALPRAZOLAM
     Dosage: 20 MG, HS
     Route: 048
  3. INSULIN GLARGINE/LIXISENATIDE [Suspect]
     Active Substance: INSULIN GLARGINE\LIXISENATIDE
     Indication: TYPE 2 DIABETES MELLITUS
     Dosage: 20 IU, QD
     Route: 058
     Dates: start: 20190704
  4. LOSARTAN. [Concomitant]
     Active Substance: LOSARTAN
     Indication: HYPERTENSION
     Dosage: 50 MG, BID
     Route: 048

REACTIONS (10)
  - Stress [Recovered/Resolved]
  - Wrong dose [Unknown]
  - Hypoglycaemic unconsciousness [Recovered/Resolved]
  - Muscular weakness [Recovered/Resolved]
  - Muscle rigidity [Recovered/Resolved]
  - Insomnia [Not Recovered/Not Resolved]
  - Syncope [Recovered/Resolved]
  - Dysarthria [Recovered/Resolved]
  - Wrong technique in product usage process [Unknown]
  - Visual impairment [Unknown]

NARRATIVE: CASE EVENT DATE: 20190726
